FAERS Safety Report 4756185-0 (Version None)
Quarter: 2005Q3

REPORT INFORMATION
  Report Type: 
  Country: None (occurrence: None)
  Receive Date: 20050830
  Receipt Date: 20050429
  Transmission Date: 20060218
  Serious: No
  Sender: FDA-Public Use
  Company Number: US-GLAXOSMITHKLINE-A0556441A

PATIENT
  Age: 73 Year
  Sex: Female
  Weight: 53.2 kg

DRUGS (2)
  1. WELLBUTRIN XL [Suspect]
     Indication: DEPRESSION
     Dosage: 300MG PER DAY
     Route: 048
     Dates: start: 20050416
  2. LAMICTAL [Concomitant]
     Dosage: 100MG PER DAY
     Route: 048
     Dates: start: 20041010

REACTIONS (4)
  - ANXIETY [None]
  - FEELING JITTERY [None]
  - INSOMNIA [None]
  - PALPITATIONS [None]
